FAERS Safety Report 9445941 (Version 2)
Quarter: 2013Q3

REPORT INFORMATION
  Report Type: Spontaneous
  Country: US (occurrence: US)
  Receive Date: 20130807
  Receipt Date: 20130930
  Transmission Date: 20140515
  Serious: Yes (Other)
  Sender: FDA-Public Use
  Company Number: US-MPIJNJ-2013-05950

PATIENT
  Age: 18 Year
  Sex: Female

DRUGS (1)
  1. VELCADE [Suspect]
     Indication: TRANSPLANT REJECTION
     Dosage: 1.3 MG/M2, UNK
     Route: 042

REACTIONS (5)
  - Mycobacterial infection [Unknown]
  - Cytomegalovirus infection [Unknown]
  - Herpangina [Unknown]
  - Leukopenia [Unknown]
  - Off label use [Unknown]
